FAERS Safety Report 21669861 (Version 1)
Quarter: 2022Q4

REPORT INFORMATION
  Report Type: Spontaneous
  Country: IT (occurrence: IT)
  Receive Date: 20221201
  Receipt Date: 20221201
  Transmission Date: 20230113
  Serious: Yes (Other)
  Sender: FDA-Public Use
  Company Number: IT-ORGANON-O2209ITA002026

PATIENT
  Age: 13 Year
  Sex: Male

DRUGS (1)
  1. MONTELUKAST [Suspect]
     Active Substance: MONTELUKAST SODIUM
     Indication: Product used for unknown indication
     Dosage: UNK
     Route: 048
     Dates: start: 2019

REACTIONS (4)
  - Hallucination, visual [Unknown]
  - Tic [Unknown]
  - Anxiety [Unknown]
  - Nervousness [Unknown]

NARRATIVE: CASE EVENT DATE: 20190101
